FAERS Safety Report 6106285-8 (Version None)
Quarter: 2009Q1

REPORT INFORMATION
  Report Type: 
  Country: None (occurrence: None)
  Receive Date: 20090306
  Receipt Date: 20090302
  Transmission Date: 20090719
  Serious: Yes (Other)
  Sender: FDA-Public Use
  Company Number: US-ASTRAZENECA-2009UW05630

PATIENT
  Age: 49 Year
  Sex: Female
  Weight: 46.3 kg

DRUGS (1)
  1. CRESTOR [Suspect]
     Indication: BLOOD CHOLESTEROL INCREASED
     Route: 048
     Dates: start: 20090110

REACTIONS (2)
  - EYE DISORDER [None]
  - MUSCULOSKELETAL DISCOMFORT [None]
